FAERS Safety Report 4524948-2 (Version None)
Quarter: 2004Q4

REPORT INFORMATION
  Report Type: 
  Country: None (occurrence: None)
  Receive Date: 20041210
  Receipt Date: 20041124
  Transmission Date: 20050328
  Serious: Yes (Hospitalization)
  Sender: FDA-Public Use
  Company Number: 2004-DE-05980GD

PATIENT
  Age: 73 Year
  Sex: Male

DRUGS (9)
  1. IPRATROPIUM BROMIDE [Suspect]
     Indication: DYSPNOEA
     Dosage: IH
     Route: 055
  2. MORPHINE SULFATE [Suspect]
     Indication: PAIN
     Dosage: SEE IMAGE
     Route: 048
  3. ORAMORPH SR [Suspect]
     Indication: PAIN
     Dosage: 75 MG, PO
     Route: 048
  4. FUROSEMIDE (FUROPSEMIDE) [Concomitant]
     Dosage: IH
     Route: 055
  5. LORAZEPAM [Suspect]
     Indication: ANXIETY
     Dosage: SEE IMAGE
  6. ALBUTEROL [Suspect]
     Indication: DYSPNOEA
     Dosage: IH
     Route: 055
  7. CHLORPROMAZINE [Suspect]
     Dosage: 100 MG (EVERY 6 HOURS),
  8. OXYGEN (OXYGEN) [Suspect]
     Indication: DYSPNOEA
     Dosage: IH
     Route: 055
  9. HALOPERIDOL [Concomitant]

REACTIONS (4)
  - DYSPNOEA [None]
  - MALIGNANT NEOPLASM PROGRESSION [None]
  - PHARYNGEAL CANCER METASTATIC [None]
  - STRIDOR [None]
